APPROVED DRUG PRODUCT: CANDESARTAN CILEXETIL
Active Ingredient: CANDESARTAN CILEXETIL
Strength: 4MG
Dosage Form/Route: TABLET;ORAL
Application: A078702 | Product #001 | TE Code: AB
Applicant: MYLAN PHARMACEUTICALS INC
Approved: May 3, 2013 | RLD: No | RS: No | Type: RX